FAERS Safety Report 9411121 (Version 6)
Quarter: 2014Q1

REPORT INFORMATION
  Report Type: Report from Study
  Country: US (occurrence: US)
  Receive Date: 20130721
  Receipt Date: 20140206
  Transmission Date: 20141002
  Serious: No
  Sender: FDA-Public Use
  Company Number: US-009507513-1307USA004848

PATIENT
  Sex: Female

DRUGS (3)
  1. REBETOL [Suspect]
     Indication: CHRONIC HEPATITIS C
     Dosage: UNK
     Route: 065
     Dates: start: 20130606, end: 20131120
  2. VICTRELIS [Suspect]
     Indication: CHRONIC HEPATITIS C
     Dosage: UNK
     Route: 065
     Dates: start: 20130703, end: 20131120
  3. PEGASYS [Suspect]
     Indication: CHRONIC HEPATITIS C
     Dosage: 180 MICROGRAM, QW
     Route: 065
     Dates: start: 20130606, end: 20131120

REACTIONS (11)
  - Anorectal discomfort [Unknown]
  - Pruritus [Unknown]
  - Asthenia [Unknown]
  - Decreased appetite [Unknown]
  - Fatigue [Unknown]
  - Nausea [Not Recovered/Not Resolved]
  - Dry mouth [Unknown]
  - Dry skin [Unknown]
  - Rash [Unknown]
  - Alopecia [Recovered/Resolved]
  - Blister [Unknown]
